FAERS Safety Report 4626313-6 (Version None)
Quarter: 2005Q2

REPORT INFORMATION
  Report Type: 
  Country: None (occurrence: None)
  Receive Date: 20050325
  Receipt Date: 20050117
  Transmission Date: 20051028
  Serious: No
  Sender: FDA-Public Use
  Company Number: USA050188560

PATIENT
  Age: 64 Year
  Sex: Female

DRUGS (1)
  1. FORTEO [Suspect]
     Indication: OSTEOPOROSIS
     Dosage: 20 UG
     Dates: start: 20041001

REACTIONS (4)
  - BONE PAIN [None]
  - INJECTION SITE HAEMORRHAGE [None]
  - INJECTION SITE MASS [None]
  - INJECTION SITE PAIN [None]
